FAERS Safety Report 21051621 (Version 2)
Quarter: 2022Q3

REPORT INFORMATION
  Report Type: Spontaneous
  Country: US (occurrence: None)
  Receive Date: 20220707
  Receipt Date: 20220902
  Transmission Date: 20221026
  Serious: No
  Sender: FDA-Public Use
  Company Number: 2022A246605

PATIENT
  Age: 762 Month
  Sex: Female

DRUGS (1)
  1. FASENRA [Suspect]
     Active Substance: BENRALIZUMAB
     Indication: Asthma
     Dosage: EVERY 8 WEEKS
     Route: 058
     Dates: start: 202202

REACTIONS (14)
  - Vertigo [Unknown]
  - Balance disorder [Unknown]
  - Nausea [Unknown]
  - Dizziness [Unknown]
  - Pulmonary congestion [Unknown]
  - Visual impairment [Unknown]
  - Eye pruritus [Unknown]
  - Sinus disorder [Unknown]
  - Fatigue [Unknown]
  - Symptom recurrence [Unknown]
  - Lacrimation increased [Unknown]
  - Eye discharge [Unknown]
  - Urticaria [Unknown]
  - Therapeutic response shortened [Unknown]

NARRATIVE: CASE EVENT DATE: 20220201
